FAERS Safety Report 23951624 (Version 1)
Quarter: 2024Q2

REPORT INFORMATION
  Report Type: Report from Study
  Country: US (occurrence: None)
  Receive Date: 20240607
  Receipt Date: 20240607
  Transmission Date: 20240716
  Serious: Yes (Hospitalization)
  Sender: FDA-Public Use
  Company Number: 2024A129828

PATIENT
  Sex: Male

DRUGS (15)
  1. TAGRISSO [Suspect]
     Active Substance: OSIMERTINIB
     Indication: Non-small cell lung cancer
     Route: 048
  2. TAGRISSO [Suspect]
     Active Substance: OSIMERTINIB
     Indication: Non-small cell lung cancer
     Route: 048
  3. ESZOPICLONE [Concomitant]
     Active Substance: ESZOPICLONE
     Route: 048
  4. ESZOPICLONE [Concomitant]
     Active Substance: ESZOPICLONE
     Route: 048
  5. PRAZOSIN [Concomitant]
     Active Substance: PRAZOSIN
  6. DULOXETINE [Concomitant]
     Active Substance: DULOXETINE
  7. NORCO [Concomitant]
     Active Substance: ACETAMINOPHEN\HYDROCODONE BITARTRATE
  8. MORPHINE [Concomitant]
     Active Substance: MORPHINE
  9. DICLOFENAC [Concomitant]
     Active Substance: DICLOFENAC
  10. SENNA [Concomitant]
     Active Substance: SENNA LEAF\SENNOSIDES\SENNOSIDES A AND B
  11. METHOCARBAMOL [Concomitant]
     Active Substance: METHOCARBAMOL
  12. OMEPRAZOLE [Concomitant]
     Active Substance: DONEPEZIL HYDROCHLORIDE\OMEPRAZOLE\OMEPRAZOLE MAGNESIUM
  13. LORAZEPAM [Concomitant]
     Active Substance: LORAZEPAM
  14. NALOXONE [Concomitant]
     Active Substance: NALOXONE
  15. MOVANTIK [Concomitant]
     Active Substance: NALOXEGOL OXALATE

REACTIONS (8)
  - Pain [Recovering/Resolving]
  - Constipation [Recovering/Resolving]
  - Arthralgia [Recovering/Resolving]
  - Myalgia [Recovering/Resolving]
  - Weight decreased [Recovering/Resolving]
  - Brain neoplasm [Recovering/Resolving]
  - Dizziness [Recovering/Resolving]
  - Diarrhoea [Recovering/Resolving]
